FAERS Safety Report 9690873 (Version 2)
Quarter: 2014Q1

REPORT INFORMATION
  Report Type: Spontaneous
  Country: US (occurrence: US)
  Receive Date: 20131115
  Receipt Date: 20140328
  Transmission Date: 20141002
  Serious: Yes (Hospitalization)
  Sender: FDA-Public Use
  Company Number: US-B.I. PHARMACEUTICALS,INC./RIDGEFIELD-2013-BI-36552BP

PATIENT
  Age: 85 Year
  Sex: Male
  Weight: 79.38 kg

DRUGS (11)
  1. PRADAXA [Suspect]
     Indication: ATRIAL FIBRILLATION
     Dosage: 300 MG
     Route: 048
     Dates: start: 20110506, end: 20111109
  2. ASPIRIN [Suspect]
     Indication: PRODUCT USED FOR UNKNOWN INDICATION
     Dosage: 81 MG
     Route: 065
     Dates: start: 2009, end: 20111109
  3. PROCARDIA XL [Concomitant]
     Dosage: 90 MG
     Route: 065
  4. ZOCOR [Concomitant]
     Dosage: 40 MG
     Route: 065
  5. ACCUPRIL [Concomitant]
     Dosage: 80 MG
     Route: 065
     Dates: start: 2007
  6. SYNTHROID [Concomitant]
     Dosage: 75 MCG
     Route: 048
     Dates: start: 2009
  7. SOTALOL [Concomitant]
     Dosage: 80 MG
     Route: 065
     Dates: start: 2009
  8. GLUCOPHAGE [Concomitant]
     Dosage: 1000 MG
     Route: 065
     Dates: start: 2009
  9. HYDROCHLOROTHIAZIDE [Concomitant]
     Route: 065
     Dates: start: 2009
  10. ONGLYZA [Concomitant]
     Dosage: 5 MG
     Route: 065
     Dates: start: 2011
  11. PRILOSEC [Concomitant]
     Dosage: 80 MG
     Route: 065

REACTIONS (5)
  - Gastrointestinal haemorrhage [Recovered/Resolved]
  - Haemorrhagic anaemia [Unknown]
  - Large intestinal ulcer [Unknown]
  - Haematuria [Unknown]
  - Contusion [Recovered/Resolved]
